FAERS Safety Report 15224786 (Version 4)
Quarter: 2021Q2

REPORT INFORMATION
  Report Type: Spontaneous
  Country: US (occurrence: US)
  Receive Date: 20180731
  Receipt Date: 20210607
  Transmission Date: 20210716
  Serious: No
  Sender: FDA-Public Use
  Company Number: US-TAKEDA-2018MPI009811

PATIENT
  Age: 80 Year
  Sex: Female

DRUGS (3)
  1. NINLARO [Suspect]
     Active Substance: IXAZOMIB CITRATE
     Indication: PLASMA CELL MYELOMA
     Dosage: 4 MILLIGRAM, 1/WEEK
     Route: 048
     Dates: start: 20180621
  2. REVLIMID [Concomitant]
     Active Substance: LENALIDOMIDE
     Dosage: UNK
     Route: 065
  3. NINLARO [Suspect]
     Active Substance: IXAZOMIB CITRATE
     Dosage: 2.3 MILLIGRAM, 1/WEEK
     Route: 048
     Dates: start: 20180621

REACTIONS (6)
  - Rash [Unknown]
  - Upper limb fracture [Unknown]
  - Fall [Unknown]
  - Product dose omission issue [Unknown]
  - Head injury [Unknown]
  - Diarrhoea [Unknown]

NARRATIVE: CASE EVENT DATE: 20180719
